FAERS Safety Report 17069513 (Version 1)
Quarter: 2019Q4

REPORT INFORMATION
  Report Type: Spontaneous
  Country: CA (occurrence: CA)
  Receive Date: 20191125
  Receipt Date: 20191125
  Transmission Date: 20200122
  Serious: Yes (Other)
  Sender: FDA-Public Use
  Company Number: CA-ICU MEDICAL, INC.-ICU2019CA00177

PATIENT
  Age: 15 Year

DRUGS (2)
  1. MORPHINE SULFATE INJECTION [Suspect]
     Active Substance: MORPHINE SULFATE
     Indication: PAIN MANAGEMENT
     Route: 042
  2. CODEINE [Suspect]
     Active Substance: CODEINE
     Indication: PAIN MANAGEMENT
     Route: 065

REACTIONS (6)
  - Somnolence [Unknown]
  - Incorrect dose administered [Unknown]
  - Bradypnoea [Unknown]
  - Oxygen saturation decreased [Unknown]
  - Product prescribing error [Unknown]
  - Product use issue [Unknown]
